FAERS Safety Report 5814141-5 (Version None)
Quarter: 2008Q3

REPORT INFORMATION
  Report Type: 
  Country: None (occurrence: None)
  Receive Date: 20080717
  Receipt Date: 20080707
  Transmission Date: 20090109
  Serious: Yes (Other)
  Sender: FDA-Public Use
  Company Number: BR-PFIZER INC-2008057765

PATIENT
  Sex: Male
  Weight: 96 kg

DRUGS (6)
  1. CELEBRA [Suspect]
     Indication: OSTEOARTHRITIS
     Route: 048
     Dates: start: 20080703, end: 20080703
  2. LOSARTAN POTASSIUM [Concomitant]
  3. PHENYTOIN [Concomitant]
  4. FRISIUM [Concomitant]
  5. ANCORON [Concomitant]
  6. ACETYLSALICYLIC ACID SRT [Concomitant]

REACTIONS (3)
  - CHOKING SENSATION [None]
  - ERYTHEMA [None]
  - PRURITUS GENERALISED [None]
